FAERS Safety Report 5054940-3 (Version None)
Quarter: 2006Q2

REPORT INFORMATION
  Report Type: 
  Country: None (occurrence: None)
  Receive Date: 20060614
  Receipt Date: 20050303
  Transmission Date: 20061013
  Serious: No
  Sender: FDA-Public Use
  Company Number: US200603001330

PATIENT
  Age: 65 Year
  Sex: Male

DRUGS (3)
  1. CIALIS [Suspect]
     Dosage: SEE IMAGE
     Route: 065
     Dates: start: 20050901
  2. CIALIS [Suspect]
     Dosage: SEE IMAGE
     Route: 065
     Dates: start: 20060224
  3. AVANDIA [Concomitant]

REACTIONS (1)
  - HEADACHE [None]
